FAERS Safety Report 16110388 (Version 1)
Quarter: 2019Q1

REPORT INFORMATION
  Report Type: Spontaneous
  Country: US (occurrence: US)
  Receive Date: 20190325
  Receipt Date: 20190325
  Transmission Date: 20190418
  Serious: Yes (Other)
  Sender: FDA-Public Use
  Company Number: US-ASTRAZENECA-2019SE43276

PATIENT
  Age: 27982 Day
  Sex: Male

DRUGS (12)
  1. TAMSULOSIN [Concomitant]
     Active Substance: TAMSULOSIN
  2. IBUPROFEN. [Concomitant]
     Active Substance: IBUPROFEN
  3. NEXIUM [Suspect]
     Active Substance: ESOMEPRAZOLE MAGNESIUM
     Route: 048
     Dates: start: 20110103
  4. LIPITOR` [Concomitant]
  5. FISH OIL [Concomitant]
     Active Substance: FISH OIL
  6. METHOCARBAMOL. [Concomitant]
     Active Substance: METHOCARBAMOL
  7. TYLENOL [Concomitant]
     Active Substance: ACETAMINOPHEN
  8. FERROUS SULFATE. [Concomitant]
     Active Substance: FERROUS SULFATE
  9. TRAMADOL. [Concomitant]
     Active Substance: TRAMADOL
  10. MELOXICAM. [Concomitant]
     Active Substance: MELOXICAM
  11. CARVEDILOL. [Concomitant]
     Active Substance: CARVEDILOL
  12. ASPIRIN. [Concomitant]
     Active Substance: ASPIRIN

REACTIONS (1)
  - Chronic kidney disease [Unknown]

NARRATIVE: CASE EVENT DATE: 20141212
